FAERS Safety Report 9031479 (Version 1)
Quarter: 2013Q1

REPORT INFORMATION
  Report Type: Spontaneous
  Country: US (occurrence: US)
  Receive Date: 20130124
  Receipt Date: 20130124
  Transmission Date: 20140127
  Serious: No
  Sender: FDA-Public Use
  Company Number: US-JNJFOC-20130111060

PATIENT
  Sex: Male
  Weight: 86.18 kg

DRUGS (2)
  1. SANDOZ FENTANYL TRANSDERMAL SYSTEM [Suspect]
     Indication: BRAIN NEOPLASM
     Dosage: NDC 0781 7242 55
     Route: 062
     Dates: start: 201210, end: 20130111
  2. SANDOZ FENTANYL TRANSDERMAL SYSTEM [Suspect]
     Indication: BRAIN NEOPLASM
     Route: 062
     Dates: start: 20130111

REACTIONS (5)
  - Withdrawal syndrome [Not Recovered/Not Resolved]
  - Product quality issue [Not Recovered/Not Resolved]
  - Wrong technique in drug usage process [Not Recovered/Not Resolved]
  - Therapeutic response decreased [Not Recovered/Not Resolved]
  - Hyperhidrosis [Not Recovered/Not Resolved]
